FAERS Safety Report 4267101-2 (Version None)
Quarter: 2004Q1

REPORT INFORMATION
  Report Type: 
  Country: None (occurrence: None)
  Receive Date: 20040107
  Receipt Date: 20031226
  Transmission Date: 20041129
  Serious: Yes (Death, Hospitalization, Other)
  Sender: FDA-Public Use
  Company Number: USA-2002-0002970

PATIENT
  Age: 42 Year
  Sex: Male

DRUGS (18)
  1. OXYCONTIN [Suspect]
     Indication: PAIN
     Dosage: SEE IMAGE
     Route: 048
     Dates: start: 19980101, end: 20010701
  2. OXYCONTIN [Suspect]
     Indication: PAIN
     Dosage: SEE IMAGE
     Route: 048
     Dates: start: 19980317, end: 20010701
  3. AMBIEN [Concomitant]
  4. MILK OF MAGNESIA (MAGNESIUM HYDROXIDE) [Concomitant]
  5. BENADRYL [Concomitant]
  6. VALIUM [Concomitant]
  7. PERCOCET [Concomitant]
  8. COLACE [Concomitant]
  9. MORPHINE SULFATE (SIMILAR TO NDA 19-516) (MORPHINE SULFATE, MORPHINE S [Concomitant]
  10. MEDROL [Concomitant]
  11. LORTAB [Concomitant]
  12. AMITRIPTYLINE HCL [Concomitant]
  13. CELEBREX [Concomitant]
  14. PROZAC [Concomitant]
  15. PRILOSEC [Concomitant]
  16. DEMEROL [Concomitant]
  17. DALMANE [Concomitant]
  18. LIPITOR [Concomitant]

REACTIONS (17)
  - ASTHENIA [None]
  - BACK PAIN [None]
  - CONFUSIONAL STATE [None]
  - DEPRESSION [None]
  - DIZZINESS [None]
  - DRUG DEPENDENCE [None]
  - DRUG INEFFECTIVE [None]
  - DRUG TOLERANCE [None]
  - DRUG WITHDRAWAL SYNDROME [None]
  - DYSURIA [None]
  - FALL [None]
  - HEADACHE [None]
  - INSOMNIA [None]
  - INTERVERTEBRAL DISC DISORDER [None]
  - IRRITABILITY [None]
  - TREMOR [None]
  - WEIGHT DECREASED [None]
